FAERS Safety Report 5968373-6 (Version None)
Quarter: 2008Q4

REPORT INFORMATION
  Report Type: 
  Country: None (occurrence: None)
  Receive Date: 20081126
  Receipt Date: 20081118
  Transmission Date: 20090506
  Serious: Yes (Other)
  Sender: FDA-Public Use
  Company Number: US-JNJFOC-20080903882

PATIENT
  Sex: Female
  Weight: 113.4 kg

DRUGS (6)
  1. TOPAMAX [Suspect]
     Route: 048
  2. TOPAMAX [Suspect]
     Indication: HEADACHE
     Route: 048
  3. CORZIDE [Concomitant]
     Indication: BLOOD PRESSURE
     Route: 048
  4. CRESTOR [Concomitant]
     Indication: BLOOD CHOLESTEROL
     Route: 048
  5. LEXAPRO [Concomitant]
     Indication: DEPRESSION
     Route: 048
  6. FEMHART [Concomitant]
     Indication: HORMONE REPLACEMENT THERAPY
     Route: 048

REACTIONS (5)
  - AMNESIA [None]
  - DISORIENTATION [None]
  - DIZZINESS [None]
  - EUPHORIC MOOD [None]
  - MEMORY IMPAIRMENT [None]
